FAERS Safety Report 13377815 (Version 1)
Quarter: 2017Q1

REPORT INFORMATION
  Report Type: Report from Study
  Country: BR (occurrence: BR)
  Receive Date: 20170328
  Receipt Date: 20170328
  Transmission Date: 20170429
  Serious: Yes (Death)
  Sender: FDA-Public Use
  Company Number: BR-PFIZER INC-2016581065

PATIENT

DRUGS (3)
  1. OXALIPLATIN. [Suspect]
     Active Substance: OXALIPLATIN
     Indication: COLORECTAL CANCER STAGE III
     Dosage: 85 MG/M2, OVER 2 HOURS WEEKLY, AT WEEKS 1, 3, AND 5, EVERY 8 WEEKS
     Route: 042
  2. CALCIUM FOLINATE [Suspect]
     Active Substance: LEUCOVORIN CALCIUM
     Indication: COLORECTAL CANCER STAGE III
     Dosage: 20 MG/M2, WEEKLY, AT WEEKS 1, 2, 3, 4, 5, AND 6, AT EVERY 8 WEEKS
     Route: 040
  3. FLUOROURACIL. [Suspect]
     Active Substance: FLUOROURACIL
     Indication: COLORECTAL CANCER STAGE III
     Dosage: 500 MG/M2, WEEKLY, AT WEEKS 1, 2, 3, 4, 5, AND 6, AT EVERY 8 WEEKS
     Route: 040

REACTIONS (1)
  - Lung infection [Fatal]
